FAERS Safety Report 7628935-7 (Version None)
Quarter: 2011Q3

REPORT INFORMATION
  Report Type: 
  Country: None (occurrence: None)
  Receive Date: 20110715
  Receipt Date: 20110701
  Transmission Date: 20111222
  Serious: Yes (Hospitalization)
  Sender: FDA-Public Use
  Company Number: NPIL/SEV/H/2011/27

PATIENT
  Age: 62 Year
  Sex: Male

DRUGS (4)
  1. FENTANYL [Concomitant]
  2. ROCURONIUM BROMIDE [Concomitant]
  3. SEVOFLURANE [Suspect]
     Indication: INTERVERTEBRAL DISC OPERATION
     Dosage: INHALATION
     Route: 055
  4. PROPOFOL [Concomitant]

REACTIONS (3)
  - ELECTROCARDIOGRAM ST SEGMENT ELEVATION [None]
  - VENTRICULAR FIBRILLATION [None]
  - HYPOTENSION [None]
